FAERS Safety Report 6184430-6 (Version None)
Quarter: 2009Q2

REPORT INFORMATION
  Report Type: 
  Country: None (occurrence: None)
  Receive Date: 20090507
  Receipt Date: 20090507
  Transmission Date: 20091009
  Serious: Yes (Life-Threatening, Disabling, Other)
  Sender: FDA-Public Use
  Company Number: None

PATIENT
  Age: 89 Year
  Sex: Female
  Weight: 51.2565 kg

DRUGS (1)
  1. BACTRIM [Suspect]
     Indication: CYSTITIS
     Dosage: 1 TABLET BID X 10 BY MOUTH
     Route: 048
     Dates: start: 20090308, end: 20090313

REACTIONS (7)
  - ANXIETY [None]
  - DYSGRAPHIA [None]
  - DYSSTASIA [None]
  - FEAR OF DEATH [None]
  - FLUID INTAKE REDUCED [None]
  - HYPOPHAGIA [None]
  - TREMOR [None]
